FAERS Safety Report 21964444 (Version 1)
Quarter: 2023Q1

REPORT INFORMATION
  Report Type: Spontaneous
  Country: DE (occurrence: DE)
  Receive Date: 20230207
  Receipt Date: 20230207
  Transmission Date: 20230417
  Serious: Yes (Other)
  Sender: FDA-Public Use
  Company Number: DE-BAXTER-2023BAX010077

PATIENT
  Age: 64 Year
  Sex: Female

DRUGS (10)
  1. PEGFILGRASTIM [Suspect]
     Active Substance: PEGFILGRASTIM
     Indication: Product used for unknown indication
     Dosage: 6 MILLIGRAM (6 MG, FIRST ADMINISTRATION)
     Route: 065
     Dates: start: 20221109
  2. PEGFILGRASTIM [Suspect]
     Active Substance: PEGFILGRASTIM
     Dosage: 6 MILLIGRAM (6 MG, SECOND ADMINISTRATION)
     Route: 065
     Dates: start: 20221123
  3. PEGFILGRASTIM [Suspect]
     Active Substance: PEGFILGRASTIM
     Dosage: 6 MILLIGRAM (6 MG, THIRD ADMINISTRATION)
     Route: 065
     Dates: start: 20221214
  4. CYCLOPHOSPHAMIDE [Suspect]
     Active Substance: CYCLOPHOSPHAMIDE
     Indication: Product used for unknown indication
     Dosage: 10:32-12:05,600MG/M2,ROA:INFUSION,1ADMINISTRATION
     Route: 065
     Dates: start: 20221108
  5. CYCLOPHOSPHAMIDE [Suspect]
     Active Substance: CYCLOPHOSPHAMIDE
     Dosage: 10:00-11:30,600MG/M2,ROA:INFUSION,2ADMINISTRATION
     Route: 065
     Dates: start: 20221122
  6. CYCLOPHOSPHAMIDE [Suspect]
     Active Substance: CYCLOPHOSPHAMIDE
     Dosage: 10:12-11:12,600MG/M2,ROA:INFUSION,3ADMINISTRATION
     Route: 065
     Dates: start: 20221213
  7. CYCLOPHOSPHAMIDE [Suspect]
     Active Substance: CYCLOPHOSPHAMIDE
     Dosage: UNK
     Route: 065
  8. MESNA [Suspect]
     Active Substance: MESNA
     Indication: Product used for unknown indication
     Dosage: 400 MILLIGRAM (INTRAVENOUS BOLUS)
     Route: 042
     Dates: start: 20221108
  9. MESNA [Suspect]
     Active Substance: MESNA
     Dosage: 400 MILLIGRAM (INTRAVENOUS BOLUS)
     Route: 042
     Dates: start: 20221122
  10. MESNA [Suspect]
     Active Substance: MESNA
     Dosage: 400 MILLIGRAM (INTRAVENOUS BOLUS)
     Route: 042
     Dates: start: 20221213

REACTIONS (3)
  - White blood cell count decreased [Recovering/Resolving]
  - Platelet count decreased [Recovering/Resolving]
  - Haemoglobin decreased [Unknown]
